FAERS Safety Report 6368022-1 (Version None)
Quarter: 2009Q3

REPORT INFORMATION
  Report Type: 
  Country: None (occurrence: None)
  Receive Date: 20090922
  Receipt Date: 20090915
  Transmission Date: 20100115
  Serious: Yes (Hospitalization)
  Sender: FDA-Public Use
  Company Number: FR-ROCHE-656835

PATIENT
  Age: 25 Year
  Sex: Female

DRUGS (11)
  1. RIVOTRIL [Suspect]
     Indication: EPILEPSY
     Route: 042
     Dates: start: 20070906, end: 20070916
  2. ESOMEPRAZOLE [Suspect]
     Route: 065
     Dates: start: 20070906, end: 20070920
  3. DI-HYDAN [Suspect]
     Indication: EPILEPSY
     Route: 048
     Dates: start: 20070905, end: 20070916
  4. PIPERACILLIN/TAZOBACTAM [Suspect]
     Dosage: DRUG REPORTED AS PIPERACILLIN TAZOBACTAM MYLAN
     Route: 042
     Dates: start: 20070909, end: 20070916
  5. PENTOTHAL [Suspect]
     Indication: EPILEPSY
     Route: 042
     Dates: start: 20070906, end: 20070913
  6. FUROSEMIDE [Suspect]
     Route: 065
     Dates: start: 20070906, end: 20070923
  7. ORBENIN CAP [Concomitant]
  8. KEPPRA [Concomitant]
     Dates: start: 20070916
  9. GARDENAL [Concomitant]
  10. LOVENOX [Concomitant]
  11. URBANYL [Concomitant]

REACTIONS (2)
  - LEUKOPENIA [None]
  - NEUTROPENIA [None]
